FAERS Safety Report 9133409 (Version 1)
Quarter: 2013Q1

REPORT INFORMATION
  Report Type: Spontaneous
  Country: US (occurrence: US)
  Receive Date: 20130301
  Receipt Date: 20130301
  Transmission Date: 20140127
  Serious: No
  Sender: FDA-Public Use
  Company Number: US-009507513-2011SP054456

PATIENT
  Sex: Female
  Weight: 77.98 kg

DRUGS (1)
  1. NUVARING [Suspect]
     Indication: CONTRACEPTION
     Dosage: UNK
     Route: 067
     Dates: start: 20090811, end: 20091213

REACTIONS (7)
  - Thrombophlebitis superficial [Recovered/Resolved]
  - Anxiety [Recovered/Resolved]
  - Grief reaction [Recovered/Resolved]
  - Depression [Unknown]
  - Maternal exposure before pregnancy [Unknown]
  - Phlebitis [Unknown]
  - Varicose vein [Unknown]
